FAERS Safety Report 10058674 (Version 3)
Quarter: 2014Q2

REPORT INFORMATION
  Report Type: Report from Study
  Country: JP (occurrence: JP)
  Receive Date: 20140404
  Receipt Date: 20140630
  Transmission Date: 20141212
  Serious: Yes (Hospitalization)
  Sender: FDA-Public Use
  Company Number: JP-SA-2014SA021185

PATIENT
  Age: 72 Year
  Sex: Female
  Weight: 56.6 kg

DRUGS (19)
  1. THYMOGLOBULINE [Suspect]
     Indication: APLASTIC ANAEMIA
     Route: 042
     Dates: start: 20130826, end: 20130830
  2. NEORAL [Concomitant]
     Indication: APLASTIC ANAEMIA
     Dates: start: 20130826
  3. PREDNISOLONE [Concomitant]
     Indication: PROPHYLAXIS
     Dates: start: 20130831, end: 20131008
  4. BAKTAR [Concomitant]
     Indication: INFECTION PROPHYLAXIS
     Dates: start: 20130826
  5. ITRIZOLE [Concomitant]
     Indication: INFECTION PROPHYLAXIS
     Route: 048
     Dates: start: 20130826
  6. PARIET [Concomitant]
     Indication: PROPHYLAXIS AGAINST GASTROINTESTINAL ULCER
     Dates: start: 20130826
  7. NEUTROGIN [Concomitant]
     Indication: APLASTIC ANAEMIA
     Dates: start: 20130830, end: 20131112
  8. MUCOSTA [Concomitant]
     Indication: PROPHYLAXIS
     Dates: start: 20130826
  9. ACECOL [Concomitant]
     Indication: APLASTIC ANAEMIA
     Dates: start: 20130826
  10. MAINTATE [Concomitant]
     Indication: APLASTIC ANAEMIA
     Dates: start: 20130826
  11. ADALAT CR [Concomitant]
     Indication: APLASTIC ANAEMIA
     Dates: start: 20130826
  12. FRANDOL [Concomitant]
     Indication: APLASTIC ANAEMIA
     Dates: start: 20130826
  13. HYPEN [Concomitant]
     Indication: APLASTIC ANAEMIA
     Dates: start: 20130826
  14. DIFLUCAN [Concomitant]
     Indication: INFECTION PROPHYLAXIS
     Dates: start: 20130905
  15. DESFERAL [Concomitant]
     Indication: APLASTIC ANAEMIA
     Dates: start: 20130909, end: 20131016
  16. LENDORMIN [Concomitant]
     Indication: APLASTIC ANAEMIA
     Dates: start: 20130905
  17. GASMOTIN [Concomitant]
     Indication: PROPHYLAXIS
     Dates: start: 20130914
  18. ALL OTHER THERAPEUTIC PRODUCTS [Concomitant]
     Indication: APLASTIC ANAEMIA
     Dates: start: 20130930
  19. FLORID [Concomitant]
     Indication: INFECTION PROPHYLAXIS
     Route: 048
     Dates: start: 20131003, end: 20131011

REACTIONS (4)
  - Hypophagia [Recovering/Resolving]
  - Pneumonia [Recovering/Resolving]
  - Cytomegalovirus viraemia [Recovering/Resolving]
  - Cardiac failure congestive [Recovering/Resolving]
